FAERS Safety Report 23455194 (Version 2)
Quarter: 2024Q1

REPORT INFORMATION
  Report Type: Spontaneous
  Country: JP (occurrence: JP)
  Receive Date: 20240130
  Receipt Date: 20240219
  Transmission Date: 20240410
  Serious: Yes (Other)
  Sender: FDA-Public Use
  Company Number: JP-AMNEAL PHARMACEUTICALS-2024-AMRX-00225

PATIENT

DRUGS (9)
  1. ONGENTYS [Suspect]
     Active Substance: OPICAPONE
     Dosage: 25 MG, DAILY (BEFORE BEDTIME)
     Route: 048
     Dates: start: 20231003, end: 2023
  2. ONGENTYS [Suspect]
     Active Substance: OPICAPONE
     Dosage: 25 MG, DAILY
     Route: 048
     Dates: start: 20231204, end: 20231204
  3. ONGENTYS [Suspect]
     Active Substance: OPICAPONE
     Dosage: 25 MG, DAILY
     Route: 048
  4. NEUPRO [Concomitant]
     Active Substance: ROTIGOTINE
     Indication: Product used for unknown indication
     Dosage: TAPE
     Route: 065
     Dates: start: 20231003
  5. NEUPRO [Concomitant]
     Active Substance: ROTIGOTINE
     Dosage: UNK
     Route: 065
     Dates: start: 20231205
  6. BENSERAZIDE HYDROCHLORIDE\LEVODOPA [Concomitant]
     Active Substance: BENSERAZIDE HYDROCHLORIDE\LEVODOPA
     Indication: Product used for unknown indication
     Dosage: UNK
     Route: 065
     Dates: start: 20231003
  7. SELEGILINE HYDROCHLORIDE [Concomitant]
     Active Substance: SELEGILINE HYDROCHLORIDE
     Indication: Product used for unknown indication
     Dosage: UNK
     Route: 065
     Dates: start: 20231003
  8. DONEPEZIL HYDROCHLORIDE [Concomitant]
     Active Substance: DONEPEZIL HYDROCHLORIDE
     Indication: Product used for unknown indication
     Dosage: UNK
     Route: 065
     Dates: start: 20231003
  9. ISTRADEFYLLINE [Concomitant]
     Active Substance: ISTRADEFYLLINE
     Indication: Product used for unknown indication
     Dosage: UNK
     Route: 065
     Dates: start: 20231003

REACTIONS (1)
  - Delirium [Recovered/Resolved]

NARRATIVE: CASE EVENT DATE: 20231205
